FAERS Safety Report 12253383 (Version 2)
Quarter: 2016Q2

REPORT INFORMATION
  Report Type: Report from Study
  Country: CA (occurrence: CA)
  Receive Date: 20160411
  Receipt Date: 20160422
  Transmission Date: 20160815
  Serious: Yes (Hospitalization)
  Sender: FDA-Public Use
  Company Number: CA-ABBVIE-16K-028-1600032-00

PATIENT
  Age: 60 Year
  Sex: Male

DRUGS (28)
  1. LASIX [Concomitant]
     Active Substance: FUROSEMIDE
     Dosage: ONCE DAILY
     Route: 042
     Dates: start: 20151104, end: 20151108
  2. CELEBREX [Concomitant]
     Active Substance: CELECOXIB
     Indication: PSORIATIC ARTHROPATHY
     Dosage: TWICE PER DAY AS NEEDED
     Route: 048
     Dates: start: 2004
  3. ZOPLICONE [Concomitant]
     Active Substance: ZOPICLONE
     Indication: SLEEP DISORDER THERAPY
     Dosage: AT BED TIME
     Route: 048
     Dates: start: 20151107, end: 20151107
  4. PANTOPRAZOLE [Concomitant]
     Active Substance: PANTOPRAZOLE SODIUM
     Indication: GASTROINTESTINAL DISORDER
     Route: 042
     Dates: start: 20151106, end: 20151108
  5. ESOMEPRAZOLE [Concomitant]
     Active Substance: ESOMEPRAZOLE
     Indication: GASTROINTESTINAL DISORDER
     Route: 050
     Dates: start: 20151102, end: 20151107
  6. HUMIRA [Suspect]
     Active Substance: ADALIMUMAB
     Indication: PSORIASIS
     Route: 058
     Dates: start: 20090714, end: 20151028
  7. AMLODIPINE [Concomitant]
     Active Substance: AMLODIPINE BESYLATE
     Indication: HYPERTENSION
     Route: 048
     Dates: start: 20151106, end: 20151106
  8. BENEPROTEIN [Concomitant]
     Indication: ROUTINE HEALTH MAINTENANCE
     Route: 050
     Dates: start: 20151104, end: 20151105
  9. CADUET [Concomitant]
     Active Substance: AMLODIPINE BESYLATE\ATORVASTATIN CALCIUM
     Indication: HYPERTENSION
     Dosage: 10/40MG
     Route: 048
     Dates: start: 2006, end: 20150723
  10. HUMIRA [Suspect]
     Active Substance: ADALIMUMAB
     Route: 058
     Dates: start: 20151212
  11. PHOSPHATE NOVARTIS [Concomitant]
     Indication: GASTROINTESTINAL DISORDER
     Dosage: EVERY 9 HOURS
     Route: 048
     Dates: start: 20151103, end: 20151105
  12. INDAPAMIDE. [Concomitant]
     Active Substance: INDAPAMIDE
     Indication: HYPERTENSION
     Route: 048
     Dates: start: 201501, end: 20151101
  13. ESOMEPRAZOLE [Concomitant]
     Active Substance: ESOMEPRAZOLE
     Indication: DYSPEPSIA
     Route: 048
     Dates: start: 20151020
  14. APO METOPROLOL [Concomitant]
     Indication: HYPERTENSION
     Route: 048
     Dates: start: 2006, end: 20151101
  15. MISANDOZ TOBRAMYCIN [Concomitant]
     Indication: CONJUNCTIVITIS
     Dates: start: 20130812, end: 20130816
  16. AMLODIPINE [Concomitant]
     Active Substance: AMLODIPINE BESYLATE
     Route: 048
     Dates: start: 20151108, end: 20151119
  17. SIMETHICONE (DIMETHICONE) [Concomitant]
     Active Substance: DIMETHICONE
     Indication: GASTROINTESTINAL DISORDER
     Route: 050
     Dates: start: 20151102, end: 20151106
  18. LASIX [Concomitant]
     Active Substance: FUROSEMIDE
     Indication: GASTROINTESTINAL DISORDER
     Route: 042
     Dates: start: 20151103, end: 20151104
  19. AMLODIPINE [Concomitant]
     Active Substance: AMLODIPINE BESYLATE
     Indication: PRODUCT USED FOR UNKNOWN INDICATION
  20. ATORVASTATIN [Concomitant]
     Active Substance: ATORVASTATIN
     Indication: PRODUCT USED FOR UNKNOWN INDICATION
  21. CADUET [Concomitant]
     Active Substance: AMLODIPINE BESYLATE\ATORVASTATIN CALCIUM
     Dosage: 10/40MG
     Route: 048
     Dates: start: 20151120
  22. TETANUS AND DIPHTHERIA TOXOIDS ADSORBED [Concomitant]
     Active Substance: CLOSTRIDIUM TETANI\CLOSTRIDIUM TETANI TOXOID ANTIGEN (FORMALDEHYDE INACTIVATED)\CORYNEBACTERIUM DIPHTHERIAE\CORYNEBACTERIUM DIPHTHERIAE TOXOID ANTIGEN (FORMALDEHYDE INACTIVATED)
     Indication: IMMUNISATION
     Route: 030
     Dates: start: 20151118, end: 20151118
  23. INDAPAMIDE. [Concomitant]
     Active Substance: INDAPAMIDE
     Route: 048
     Dates: start: 20151114, end: 20151119
  24. SIMETHICONE (DIMETHICONE) [Concomitant]
     Active Substance: DIMETHICONE
     Route: 048
     Dates: start: 20151110, end: 20151119
  25. ATENOLOL. [Concomitant]
     Active Substance: ATENOLOL
     Indication: HYPERTENSION
     Route: 048
     Dates: start: 20151211
  26. CADUET [Concomitant]
     Active Substance: AMLODIPINE BESYLATE\ATORVASTATIN CALCIUM
     Indication: HYPERLIPIDAEMIA
     Dosage: 10/40MG
     Route: 048
     Dates: start: 20150724, end: 20151031
  27. ROCURONIUM [Concomitant]
     Active Substance: ROCURONIUM BROMIDE
     Indication: MUSCLE RELAXANT THERAPY
     Route: 042
     Dates: start: 20151103, end: 20151103
  28. MAXERAN [Concomitant]
     Active Substance: METOCLOPRAMIDE HYDROCHLORIDE
     Indication: GASTROINTESTINAL DISORDER
     Route: 042
     Dates: start: 20151102, end: 20151106

REACTIONS (25)
  - Lung consolidation [Recovered/Resolved]
  - Multiple injuries [Recovered/Resolved]
  - Thoracic vertebral fracture [Recovered/Resolved]
  - Subcutaneous emphysema [Recovered/Resolved]
  - Atelectasis [Recovered/Resolved]
  - Clavicle fracture [Recovering/Resolving]
  - Pleural effusion [Recovered/Resolved]
  - Constipation [Unknown]
  - Type 2 diabetes mellitus [Unknown]
  - Pneumothorax [Recovered/Resolved]
  - Thoracic vertebral fracture [Unknown]
  - Dyspepsia [Unknown]
  - Sinusitis [Unknown]
  - Skull fractured base [Unknown]
  - Cervical vertebral fracture [Unknown]
  - Rib fracture [Recovering/Resolving]
  - Fall [Recovering/Resolving]
  - Aortic calcification [Unknown]
  - Flail chest [Recovered/Resolved]
  - Subcutaneous emphysema [Unknown]
  - Vascular stenosis [Unknown]
  - Clavicle fracture [Unknown]
  - Aortic arteriosclerosis [Unknown]
  - Epistaxis [Unknown]
  - Electrolyte imbalance [Unknown]

NARRATIVE: CASE EVENT DATE: 201511
